FAERS Safety Report 14816372 (Version 1)
Quarter: 2018Q2

REPORT INFORMATION
  Report Type: Spontaneous
  Country: US (occurrence: US)
  Receive Date: 20180417
  Receipt Date: 20180417
  Transmission Date: 20180711
  Serious: Yes (Life-Threatening, Hospitalization, Disabling)
  Sender: FDA-Public Use
  Company Number: None

PATIENT
  Age: 63 Year
  Sex: Male
  Weight: 150 kg

DRUGS (1)
  1. TECENTRIQ [Suspect]
     Active Substance: ATEZOLIZUMAB
     Indication: METASTATIC CARCINOMA OF THE BLADDER
     Route: 041

REACTIONS (9)
  - Unresponsive to stimuli [None]
  - Pruritus [None]
  - Infusion related reaction [None]
  - Memory impairment [None]
  - Blood pressure immeasurable [None]
  - Encephalopathy [None]
  - Rib fracture [None]
  - Urticaria [None]
  - Pulse absent [None]

NARRATIVE: CASE EVENT DATE: 20180326
